FAERS Safety Report 6179430-6 (Version None)
Quarter: 2009Q2

REPORT INFORMATION
  Report Type: 
  Country: None (occurrence: None)
  Receive Date: 20090505
  Receipt Date: 20090427
  Transmission Date: 20091009
  Serious: Yes (Hospitalization)
  Sender: FDA-Public Use
  Company Number: B0564904A

PATIENT
  Sex: Male

DRUGS (8)
  1. FLUTIDE [Suspect]
     Indication: ASTHMA
     Dosage: 50MCG TWICE PER DAY
     Route: 055
     Dates: start: 20090304, end: 20090305
  2. ZOVIRAX [Suspect]
     Indication: HERPES VIRUS INFECTION
     Dosage: 200MG TWICE PER DAY
     Route: 048
     Dates: start: 20090305, end: 20090309
  3. CEFDINIR [Suspect]
     Indication: DRUG USE FOR UNKNOWN INDICATION
     Dosage: 100MG THREE TIMES PER DAY
     Route: 048
     Dates: start: 20090227, end: 20090304
  4. ASVERIN [Suspect]
     Indication: DRUG USE FOR UNKNOWN INDICATION
     Dosage: 20MG THREE TIMES PER DAY
     Route: 048
     Dates: start: 20090304, end: 20090309
  5. MUCODYNE [Suspect]
     Indication: PRODUCTIVE COUGH
     Dosage: 1500MG FIVE TIMES PER DAY
     Route: 048
     Dates: start: 20090305, end: 20090301
  6. UNKNOWN DRUG [Suspect]
     Indication: DRUG USE FOR UNKNOWN INDICATION
     Route: 048
     Dates: start: 20090227, end: 20090227
  7. KLARICID [Suspect]
     Indication: DRUG USE FOR UNKNOWN INDICATION
     Dosage: 200MG TWICE PER DAY
     Route: 048
     Dates: start: 20090305, end: 20090309
  8. ONON [Suspect]
     Indication: ASTHMA
     Dosage: 25MG SEVEN TIMES PER DAY
     Route: 048
     Dates: start: 20090305, end: 20090309

REACTIONS (3)
  - BLISTER [None]
  - ENANTHEMA [None]
  - STEVENS-JOHNSON SYNDROME [None]
